FAERS Safety Report 11909171 (Version 1)
Quarter: 2016Q1

REPORT INFORMATION
  Report Type: Spontaneous
  Country: US (occurrence: US)
  Receive Date: 20160112
  Receipt Date: 20160112
  Transmission Date: 20160526
  Serious: Yes (Hospitalization)
  Sender: FDA-Public Use
  Company Number: US-BEH-2015057427

PATIENT
  Age: 61 Year
  Weight: 78 kg

DRUGS (28)
  1. ACETAMINOPHEN. [Concomitant]
     Active Substance: ACETAMINOPHEN
  2. PREDNISONE. [Concomitant]
     Active Substance: PREDNISONE
  3. LIDOCAINE/PRILOCAINE [Concomitant]
  4. LMX [Concomitant]
     Active Substance: LIDOCAINE
  5. GUAIFENESIN. [Concomitant]
     Active Substance: GUAIFENESIN
  6. TOBI [Concomitant]
     Active Substance: TOBRAMYCIN
  7. ALEVE [Concomitant]
     Active Substance: NAPROXEN SODIUM
  8. DIPHENHYDRAMINE. [Concomitant]
     Active Substance: DIPHENHYDRAMINE
  9. METFORMIN [Concomitant]
     Active Substance: METFORMIN HYDROCHLORIDE
  10. VITAMIN C [Concomitant]
     Active Substance: ASCORBIC ACID
  11. KLONOPIN [Concomitant]
     Active Substance: CLONAZEPAM
  12. GLYBURIDE. [Concomitant]
     Active Substance: GLYBURIDE
  13. HIZENTRA [Suspect]
     Active Substance: HUMAN IMMUNOGLOBULIN G
     Indication: BRONCHIECTASIS
     Dosage: 10 GM 50 ML VIAL
     Route: 058
     Dates: start: 20140630
  14. VENTOLIN [Concomitant]
     Active Substance: ALBUTEROL SULFATE
  15. CALCIUM [Concomitant]
     Active Substance: CALCIUM
  16. COLACE [Concomitant]
     Active Substance: DOCUSATE SODIUM
  17. ALBUTEROL. [Concomitant]
     Active Substance: ALBUTEROL
  18. BACTRIM [Concomitant]
     Active Substance: SULFAMETHOXAZOLE\TRIMETHOPRIM
  19. HIZENTRA [Suspect]
     Active Substance: HUMAN IMMUNOGLOBULIN G
     Indication: ALVEOLITIS ALLERGIC
     Dosage: 10 GM 50 ML VIAL
     Route: 058
     Dates: start: 20140630
  20. QVAR [Concomitant]
     Active Substance: BECLOMETHASONE DIPROPIONATE
  21. METHYLPREDNISOLONE. [Concomitant]
     Active Substance: METHYLPREDNISOLONE
  22. AZITHROMYCIN ANHYDROUS. [Concomitant]
     Active Substance: AZITHROMYCIN ANHYDROUS
  23. SYMBICORT [Concomitant]
     Active Substance: BUDESONIDE\FORMOTEROL FUMARATE DIHYDRATE
  24. CIPROFLOXACIN. [Concomitant]
     Active Substance: CIPROFLOXACIN
  25. HIZENTRA [Suspect]
     Active Substance: HUMAN IMMUNOGLOBULIN G
     Indication: ALVEOLITIS ALLERGIC
     Dosage: 10 GM 50 ML VIAL
     Route: 058
     Dates: start: 20140630
  26. HIZENTRA [Suspect]
     Active Substance: HUMAN IMMUNOGLOBULIN G
     Indication: PNEUMONITIS
     Dosage: 10 GM 50 ML VIAL
     Route: 058
     Dates: start: 20140630
  27. EPIPEN [Concomitant]
     Active Substance: EPINEPHRINE
  28. PANTOPRAZOLE [Concomitant]
     Active Substance: PANTOPRAZOLE SODIUM

REACTIONS (1)
  - Lung infection pseudomonal [Unknown]

NARRATIVE: CASE EVENT DATE: 201512
